FAERS Safety Report 18236260 (Version 4)
Quarter: 2020Q3

REPORT INFORMATION
  Report Type: Spontaneous
  Country: US (occurrence: US)
  Receive Date: 20200906
  Receipt Date: 20200914
  Transmission Date: 20201103
  Serious: Yes (Life-Threatening, Hospitalization, Disabling, Other)
  Sender: FDA-Public Use
  Company Number: US-BAXTER-2020BAX018014

PATIENT
  Sex: Female

DRUGS (1)
  1. TISSEEL [Suspect]
     Active Substance: FIBRINOGEN HUMAN\THROMBIN HUMAN
     Indication: HAEMOSTASIS
     Route: 065

REACTIONS (5)
  - Pneumothorax [Unknown]
  - Cardiogenic shock [Unknown]
  - Anaphylactic shock [Unknown]
  - Cardiac arrest [Unknown]
  - Pleural effusion [Unknown]
